FAERS Safety Report 7079989-0 (Version None)
Quarter: 2010Q4

REPORT INFORMATION
  Report Type: 
  Country: None (occurrence: None)
  Receive Date: 20101102
  Receipt Date: 20091123
  Transmission Date: 20110411
  Serious: No
  Sender: FDA-Public Use
  Company Number: US-ABBOTT-09P-163-0610653-00

PATIENT
  Sex: Male
  Weight: 63.56 kg

DRUGS (2)
  1. BIAXIN [Suspect]
     Indication: PRODUCT USED FOR UNKNOWN INDICATION
     Dates: start: 20060101, end: 20060101
  2. REMICADE [Concomitant]
     Indication: CROHN'S DISEASE
     Dates: start: 20030101, end: 20090101

REACTIONS (1)
  - FEELING DRUNK [None]
